FAERS Safety Report 12139210 (Version 4)
Quarter: 2016Q2

REPORT INFORMATION
  Report Type: Spontaneous
  Country: JP (occurrence: JP)
  Receive Date: 20160302
  Receipt Date: 20160523
  Transmission Date: 20160815
  Serious: Yes (Hospitalization)
  Sender: FDA-Public Use
  Company Number: JP-ROCHE-1719523

PATIENT
  Age: 81 Year
  Sex: Male

DRUGS (6)
  1. GATIFLO [Concomitant]
     Active Substance: GATIFLOXACIN
     Indication: PRODUCT USED FOR UNKNOWN INDICATION
     Dosage: FOR 3 DAYS BEFORE AND AFTER INJECTION
     Route: 047
     Dates: start: 201410, end: 201410
  2. GATIFLO [Concomitant]
     Active Substance: GATIFLOXACIN
     Dosage: FOR 3 DAYS BEFORE AND AFTER INJECTION
     Route: 047
     Dates: start: 201411, end: 201411
  3. LUCENTIS [Suspect]
     Active Substance: RANIBIZUMAB
     Indication: AGE-RELATED MACULAR DEGENERATION
     Dosage: PREFILLED SYRINGE (SOLUTION IN SYRINGE)
     Route: 031
     Dates: start: 20141120
  4. LUCENTIS [Suspect]
     Active Substance: RANIBIZUMAB
     Dosage: PREFILLED SYRINGE (SOLUTION IN SYRINGE)
     Route: 031
     Dates: start: 20141222
  5. LUCENTIS [Suspect]
     Active Substance: RANIBIZUMAB
     Indication: VISUAL ACUITY REDUCED
     Dosage: PREFILLED SYRINGE (SOLUTION IN SYRINGE)
     Route: 031
     Dates: start: 20141020
  6. GATIFLO [Concomitant]
     Active Substance: GATIFLOXACIN
     Dosage: FOR 3 DAYS BEFORE AND AFTER INJECTION
     Route: 047
     Dates: start: 201412, end: 201412

REACTIONS (1)
  - Myocardial infarction [Recovered/Resolved]

NARRATIVE: CASE EVENT DATE: 201510
